FAERS Safety Report 10935825 (Version 2)
Quarter: 2015Q2

REPORT INFORMATION
  Report Type: Spontaneous
  Country: GB (occurrence: GB)
  Receive Date: 20150320
  Receipt Date: 20150416
  Transmission Date: 20150821
  Serious: Yes (Life-Threatening, Other)
  Sender: FDA-Public Use
  Company Number: GB-BAYER-2015-037941

PATIENT
  Age: 16 Year
  Sex: Female
  Weight: 65 kg

DRUGS (1)
  1. GADOVIST 1.0 MMOL/ML SOLUTION FOR INJECTION [Suspect]
     Active Substance: GADOBUTROL
     Indication: NUCLEAR MAGNETIC RESONANCE IMAGING BRAIN
     Dosage: 7.5 ML, ONCE
     Route: 042
     Dates: start: 20150310, end: 20150310

REACTIONS (7)
  - Chest pain [None]
  - Adverse event [None]
  - Pharyngeal oedema [None]
  - Chest discomfort [None]
  - Rash erythematous [None]
  - Paraesthesia oral [None]
  - Malaise [Recovered/Resolved]

NARRATIVE: CASE EVENT DATE: 20150310
